FAERS Safety Report 6289472-8 (Version None)
Quarter: 2009Q3

REPORT INFORMATION
  Report Type: 
  Country: None (occurrence: None)
  Receive Date: 20090730
  Receipt Date: 20090727
  Transmission Date: 20100115
  Serious: Yes (Hospitalization)
  Sender: FDA-Public Use
  Company Number: JP-SP-2009-03080

PATIENT
  Age: 78 Year
  Sex: Male

DRUGS (2)
  1. IMMUCYST [Suspect]
     Indication: BLADDER CANCER
     Route: 043
     Dates: start: 20080701, end: 20080701
  2. IMMUCYST [Suspect]
     Route: 043
     Dates: start: 20080701, end: 20080701

REACTIONS (5)
  - DYSURIA [None]
  - INCORRECT DOSE ADMINISTERED [None]
  - POLLAKIURIA [None]
  - PROSTATIC ABSCESS [None]
  - PYREXIA [None]
